FAERS Safety Report 6616886-6 (Version None)
Quarter: 2010Q1

REPORT INFORMATION
  Report Type: 
  Country: None (occurrence: None)
  Receive Date: 20100301
  Receipt Date: 20100218
  Transmission Date: 20100710
  Serious: Yes (Death)
  Sender: FDA-Public Use
  Company Number: 2010SP005700

PATIENT
  Age: 46 Year
  Sex: Male

DRUGS (6)
  1. REMERON [Suspect]
     Indication: DEPRESSION
     Dosage: 15 MG;PO ; 30 MG;PO ; 45 MG;PO
     Route: 048
     Dates: start: 20091107, end: 20091120
  2. REMERON [Suspect]
     Indication: DEPRESSION
     Dosage: 15 MG;PO ; 30 MG;PO ; 45 MG;PO
     Route: 048
     Dates: start: 20091121, end: 20091204
  3. REMERON [Suspect]
     Indication: DEPRESSION
     Dosage: 15 MG;PO ; 30 MG;PO ; 45 MG;PO
     Route: 048
     Dates: start: 20091205
  4. NELUROLEN [Concomitant]
  5. SURMONTIL [Concomitant]
  6. RESMIT [Concomitant]

REACTIONS (2)
  - COMPLETED SUICIDE [None]
  - THERAPEUTIC RESPONSE DECREASED [None]
